FAERS Safety Report 20122963 (Version 2)
Quarter: 2022Q1

REPORT INFORMATION
  Report Type: Spontaneous
  Country: US (occurrence: US)
  Receive Date: 20211129
  Receipt Date: 20220222
  Transmission Date: 20220423
  Serious: Yes (Other)
  Sender: FDA-Public Use
  Company Number: US-UCBSA-2021033460

PATIENT
  Age: 6 Year
  Sex: Male

DRUGS (28)
  1. LEVETIRACETAM [Suspect]
     Active Substance: LEVETIRACETAM
     Indication: Febrile infection-related epilepsy syndrome
     Dosage: UNK
     Route: 042
  2. LEVETIRACETAM [Suspect]
     Active Substance: LEVETIRACETAM
     Indication: Seizure
     Dosage: 100 MG/KG/DAY
  3. LACOSAMIDE [Suspect]
     Active Substance: LACOSAMIDE
     Indication: Febrile infection-related epilepsy syndrome
     Dosage: 20 MG/KG/DAY
  4. LACOSAMIDE [Suspect]
     Active Substance: LACOSAMIDE
     Indication: Seizure
  5. FOSPHENYTOIN [Suspect]
     Active Substance: FOSPHENYTOIN
     Indication: Febrile infection-related epilepsy syndrome
     Dosage: UNK
  6. FOSPHENYTOIN [Suspect]
     Active Substance: FOSPHENYTOIN
     Indication: Seizure
  7. PHENOBARBITAL [Suspect]
     Active Substance: PHENOBARBITAL
     Indication: Febrile infection-related epilepsy syndrome
     Dosage: UNK
  8. PHENOBARBITAL [Suspect]
     Active Substance: PHENOBARBITAL
     Indication: Seizure
     Dosage: 13 MG/KG/DAY
  9. MIDAZOLAM [Suspect]
     Active Substance: MIDAZOLAM
     Indication: Febrile infection-related epilepsy syndrome
     Dosage: UNK
  10. MIDAZOLAM [Suspect]
     Active Substance: MIDAZOLAM
     Indication: Seizure
     Dosage: 2.9 MG/KG/HOUR
  11. KETAMINE [Suspect]
     Active Substance: KETAMINE
     Indication: Febrile infection-related epilepsy syndrome
     Dosage: 100 MCG/KG/MINUTE OR 6 MG/KG/HOUR
  12. KETAMINE [Suspect]
     Active Substance: KETAMINE
     Indication: Seizure
  13. PENTOBARBITAL [Suspect]
     Active Substance: PENTOBARBITAL
     Indication: Febrile infection-related epilepsy syndrome
     Dosage: 6 MG/KG/HOUR
  14. PENTOBARBITAL [Suspect]
     Active Substance: PENTOBARBITAL
     Indication: Seizure
  15. METHYLPREDNISOLONE [Suspect]
     Active Substance: METHYLPREDNISOLONE
     Indication: Febrile infection-related epilepsy syndrome
     Dosage: 30 MG/KG DAILY FOR 5 DAYS
     Route: 042
  16. METHYLPREDNISOLONE [Suspect]
     Active Substance: METHYLPREDNISOLONE
     Indication: Seizure
  17. IMMUNE GLOBULIN NOS [Suspect]
     Active Substance: IMMUNE GLOBULIN NOS
     Indication: Febrile infection-related epilepsy syndrome
     Dosage: 2 G/KG OVER 2 DAYS
     Route: 042
  18. IMMUNE GLOBULIN NOS [Suspect]
     Active Substance: IMMUNE GLOBULIN NOS
     Indication: Seizure
  19. ANAKINRA [Suspect]
     Active Substance: ANAKINRA
     Indication: Febrile infection-related epilepsy syndrome
     Dosage: TITRATED TO 20 MG/KG/DAY, HOSPITAL DAY 6-20
  20. ANAKINRA [Suspect]
     Active Substance: ANAKINRA
     Indication: Seizure
  21. VALPROIC ACID [Suspect]
     Active Substance: VALPROIC ACID
     Indication: Febrile infection-related epilepsy syndrome
     Dosage: 40 MG/KG/DAY
  22. VALPROIC ACID [Suspect]
     Active Substance: VALPROIC ACID
     Indication: Seizure
  23. TOPIRAMATE [Suspect]
     Active Substance: TOPIRAMATE
     Indication: Febrile infection-related epilepsy syndrome
     Dosage: 10 MG/KG/DAY
  24. TOPIRAMATE [Suspect]
     Active Substance: TOPIRAMATE
     Indication: Seizure
  25. CANNABIDIOL [Suspect]
     Active Substance: CANNABIDIOL
     Indication: Febrile infection-related epilepsy syndrome
     Dosage: 20 MG/KG/DAY
  26. CANNABIDIOL [Suspect]
     Active Substance: CANNABIDIOL
     Indication: Seizure
  27. LORAZEPAM [Suspect]
     Active Substance: LORAZEPAM
     Indication: Febrile infection-related epilepsy syndrome
     Dosage: 1.5 MG/KG/DAY
  28. LORAZEPAM [Suspect]
     Active Substance: LORAZEPAM
     Indication: Seizure

REACTIONS (4)
  - Seizure [Recovering/Resolving]
  - Cognitive disorder [Unknown]
  - Multiple-drug resistance [Unknown]
  - Product use in unapproved indication [Unknown]
